FAERS Safety Report 7668234-0 (Version None)
Quarter: 2011Q3

REPORT INFORMATION
  Report Type: 
  Country: None (occurrence: None)
  Receive Date: 20110808
  Receipt Date: 20110728
  Transmission Date: 20111222
  Serious: Yes (Other)
  Sender: FDA-Public Use
  Company Number: GB-JNJFOC-20110800293

PATIENT
  Sex: Male

DRUGS (4)
  1. MICONAZOLE NITRATE [Suspect]
     Indication: TINEA PEDIS
     Route: 061
  2. MICONAZOLE NITRATE [Suspect]
     Route: 061
  3. MICONAZOLE NITRATE [Suspect]
     Route: 061
  4. MICONAZOLE NITRATE [Suspect]
     Indication: TINEA PEDIS
     Route: 061

REACTIONS (5)
  - SKIN EXFOLIATION [None]
  - ERYTHEMA [None]
  - HYPERSENSITIVITY [None]
  - FEELING HOT [None]
  - PAIN IN EXTREMITY [None]
